FAERS Safety Report 4747468-9 (Version None)
Quarter: 2005Q3

REPORT INFORMATION
  Report Type: 
  Country: None (occurrence: None)
  Receive Date: 20050815
  Receipt Date: 20050427
  Transmission Date: 20060218
  Serious: No
  Sender: FDA-Public Use
  Company Number: USA050495842

PATIENT
  Age: 77 Year
  Sex: Male

DRUGS (6)
  1. CIALIS [Suspect]
     Indication: ERECTILE DYSFUNCTION
     Dosage: 10 MG
     Dates: start: 20050201
  2. ASPIRIN [Concomitant]
  3. TENORMIN [Concomitant]
  4. ZOCOR (SIMVASTATIN RATIOPHARM) [Concomitant]
  5. PLAVIX [Concomitant]
  6. NICOTINIC ACID [Concomitant]

REACTIONS (5)
  - ARTERIAL DISORDER [None]
  - DRUG INEFFECTIVE [None]
  - LOSS OF LIBIDO [None]
  - THERAPEUTIC RESPONSE DECREASED [None]
  - VISUAL DISTURBANCE [None]
